FAERS Safety Report 8826299 (Version 1)
Quarter: 2012Q4

REPORT INFORMATION
  Report Type: 
  Country: US (occurrence: US)
  Receive Date: 20121008
  Receipt Date: 20121008
  Transmission Date: 20130627
  Serious: No
  Sender: FDA-Public Use
  Company Number: US-GLAXOSMITHKLINE-A0987702A

PATIENT
  Sex: Female

DRUGS (1)
  1. POTIGA [Suspect]
     Indication: PARTIAL SEIZURES
     Route: 048
     Dates: start: 201207, end: 201207

REACTIONS (4)
  - Abdominal distension [Unknown]
  - Gastric disorder [Unknown]
  - Insomnia [Unknown]
  - Breath odour [Unknown]
